FAERS Safety Report 8961045 (Version 2)
Quarter: 2012Q4

REPORT INFORMATION
  Report Type: 
  Country: CA (occurrence: CA)
  Receive Date: 20121213
  Receipt Date: 20121217
  Transmission Date: 20130627
  Serious: Yes (Death)
  Sender: FDA-Public Use
  Company Number: PHHY2012CA114516

PATIENT
  Age: 57 Year
  Sex: Male

DRUGS (6)
  1. CLOZARIL [Suspect]
     Indication: SCHIZOPHRENIA
     Dosage: 475 mg, UNK
     Route: 048
  2. TRILAFON [Concomitant]
     Dosage: 4 mg, UNK
  3. SEROQUEL [Concomitant]
     Dosage: 100 mg, HS
  4. SEROQUEL XR [Concomitant]
     Dosage: 100 mg, UNK
  5. PAXIL [Concomitant]
     Dosage: 60 mg, UNK
  6. XANAX [Concomitant]
     Dosage: 0.5 mg, BID

REACTIONS (2)
  - Death [Fatal]
  - Anxiety [Unknown]
